FAERS Safety Report 8967132 (Version 2)
Quarter: 2013Q1

REPORT INFORMATION
  Report Type: Report from Study
  Country: CA (occurrence: CA)
  Receive Date: 20121217
  Receipt Date: 20130118
  Transmission Date: 20140127
  Serious: Yes (Death, Hospitalization)
  Sender: FDA-Public Use
  Company Number: PHHY2012CA082456

PATIENT
  Age: 82 Year
  Sex: Female

DRUGS (4)
  1. CLOZARIL [Suspect]
     Dosage: 250 MG, UNK
     Route: 048
     Dates: start: 20080225
  2. RISPERDAL [Concomitant]
     Dosage: 1 MG, UNK
  3. ZYPREXA [Concomitant]
     Dosage: 7.5 MG, UNK
  4. ATIVAN [Concomitant]
     Dosage: 1 MG, UNK

REACTIONS (3)
  - Intestinal obstruction [Fatal]
  - Nosocomial infection [Fatal]
  - Pneumonia [Unknown]
